FAERS Safety Report 7048051-5 (Version None)
Quarter: 2010Q4

REPORT INFORMATION
  Report Type: 
  Country: None (occurrence: None)
  Receive Date: 20101015
  Receipt Date: 20101009
  Transmission Date: 20110411
  Serious: Yes (Other)
  Sender: FDA-Public Use
  Company Number: B0635638A

PATIENT
  Age: 58 Year
  Sex: Female

DRUGS (2)
  1. ALKERAN [Suspect]
     Indication: DIFFUSE LARGE B-CELL LYMPHOMA
     Dosage: 80MG PER DAY
     Route: 042
  2. FLUDARA [Concomitant]
     Indication: PRODUCT USED FOR UNKNOWN INDICATION
     Dosage: 100MG PER DAY
     Route: 065

REACTIONS (3)
  - ANTI-ERYTHROCYTE ANTIBODY POSITIVE [None]
  - BLOOD BILIRUBIN UNCONJUGATED INCREASED [None]
  - HEPATITIS A ANTIBODY POSITIVE [None]
